FAERS Safety Report 17662149 (Version 4)
Quarter: 2020Q2

REPORT INFORMATION
  Report Type: Spontaneous
  Country: CA (occurrence: CA)
  Receive Date: 20200413
  Receipt Date: 20200602
  Transmission Date: 20200713
  Serious: Yes (Other)
  Sender: FDA-Public Use
  Company Number: CA-GLAXOSMITHKLINE-CA2020AMR061561

PATIENT
  Sex: Female

DRUGS (1)
  1. BENLYSTA [Suspect]
     Active Substance: BELIMUMAB
     Indication: SYSTEMIC LUPUS ERYTHEMATOSUS
     Dosage: UNK

REACTIONS (12)
  - Rash erythematous [Unknown]
  - Memory impairment [Unknown]
  - Stress [Unknown]
  - Fatigue [Unknown]
  - Nausea [Unknown]
  - Contusion [Unknown]
  - Systemic lupus erythematosus [Recovering/Resolving]
  - Stomatitis [Not Recovered/Not Resolved]
  - Alopecia [Unknown]
  - Headache [Unknown]
  - Social problem [Unknown]
  - Malaise [Unknown]
